FAERS Safety Report 13530798 (Version 6)
Quarter: 2017Q3

REPORT INFORMATION
  Report Type: Report from Study
  Country: IT (occurrence: IT)
  Receive Date: 20170510
  Receipt Date: 20170711
  Transmission Date: 20171127
  Serious: Yes (Hospitalization)
  Sender: FDA-Public Use
  Company Number: IT-ROCHE-1926660

PATIENT
  Age: 32 Year
  Sex: Male
  Weight: 98 kg

DRUGS (10)
  1. TRIMETON (ITALY) [Concomitant]
     Dosage: ONCE BEFORE INFUSION
     Route: 065
     Dates: start: 20170508, end: 20170508
  2. PARACETAMOL [Concomitant]
     Active Substance: ACETAMINOPHEN
     Dosage: ONCE BEFORE INFUSION
     Route: 065
     Dates: start: 20161108, end: 20161108
  3. METHYLPREDNISOLONE. [Suspect]
     Active Substance: METHYLPREDNISOLONE
     Indication: PREMEDICATION
     Dosage: ADMINISTERED PRIOR TO EACH OCRELIZUMAB DOSE, AS PER PROTOCOL
     Route: 042
     Dates: start: 20161108, end: 20161108
  4. METHYLPREDNISOLONE. [Suspect]
     Active Substance: METHYLPREDNISOLONE
     Dosage: ADMINISTERED PRIOR TO EACH OCRELIZUMAB DOSE, AS PER PROTOCOL
     Route: 042
     Dates: start: 20170508, end: 20170508
  5. TRIMETON (ITALY) [Concomitant]
     Dosage: ONCE BEFORE INFUSION
     Route: 065
     Dates: start: 20161108, end: 20161108
  6. TRIMETON (ITALY) [Concomitant]
     Dosage: ONCE BEFORE INFUSION
     Route: 065
     Dates: start: 20161121, end: 20161121
  7. PARACETAMOL [Concomitant]
     Active Substance: ACETAMINOPHEN
     Dosage: ONCE BEFORE INFUSION
     Route: 065
     Dates: start: 20161121, end: 20161121
  8. OCRELIZUMAB. [Suspect]
     Active Substance: OCRELIZUMAB
     Indication: RELAPSING-REMITTING MULTIPLE SCLEROSIS
     Dosage: DATE OF MOST RECENT DOSE PRIOR TO SAE - 21/NOV/2016, 300MG?300MG EVERY 15 DAYS FOR FIRST DOSE FOLLOW
     Route: 042
     Dates: start: 20161108
  9. METHYLPREDNISOLONE. [Suspect]
     Active Substance: METHYLPREDNISOLONE
     Dosage: ADMINISTERED PRIOR TO EACH OCRELIZUMAB DOSE, AS PER PROTOCOL?DATE OF MOST RECENT DOSE PRIOR TO SAE -
     Route: 042
     Dates: start: 20161121, end: 20161121
  10. PARACETAMOL [Concomitant]
     Active Substance: ACETAMINOPHEN
     Dosage: ONCE BEFORE INFUSION
     Route: 065
     Dates: start: 20170518, end: 20170518

REACTIONS (1)
  - Sinusitis [Recovered/Resolved]

NARRATIVE: CASE EVENT DATE: 20170411
